FAERS Safety Report 25723996 (Version 2)
Quarter: 2025Q3

REPORT INFORMATION
  Report Type: Spontaneous
  Country: EU (occurrence: EU)
  Receive Date: 20250826
  Receipt Date: 20250904
  Transmission Date: 20251021
  Serious: Yes (Other)
  Sender: ALEXION PHARMACEUTICALS
  Company Number: EU-AstraZeneca-CH-00936030AM

PATIENT
  Age: 75 Year
  Sex: Female

DRUGS (1)
  1. DAPAGLIFLOZIN [Suspect]
     Active Substance: DAPAGLIFLOZIN
     Dosage: 10 MILLIGRAM, QD
     Route: 065

REACTIONS (5)
  - Arrhythmia [Unknown]
  - Blood pressure decreased [Unknown]
  - Off label use [Unknown]
  - Breast enlargement [Unknown]
  - Drug intolerance [Unknown]
